FAERS Safety Report 20987936 (Version 1)
Quarter: 2022Q2

REPORT INFORMATION
  Report Type: Report from Study
  Country: US (occurrence: US)
  Receive Date: 20220621
  Receipt Date: 20220621
  Transmission Date: 20220720
  Serious: Yes (Other)
  Sender: FDA-Public Use
  Company Number: US-TAKEDA-2021TUS059586

PATIENT
  Sex: Female
  Weight: 56 kg

DRUGS (1)
  1. PONATINIB [Suspect]
     Active Substance: PONATINIB
     Indication: Acute lymphocytic leukaemia
     Dosage: 45 MILLIGRAM, QD
     Route: 065
     Dates: start: 20210809

REACTIONS (7)
  - Acute lymphocytic leukaemia [Unknown]
  - Abdominal pain upper [Recovered/Resolved]
  - Skin exfoliation [Unknown]
  - Dry skin [Unknown]
  - Drug ineffective [Unknown]
  - Constipation [Recovering/Resolving]
  - Product dose omission issue [Unknown]
